FAERS Safety Report 6186565-0 (Version None)
Quarter: 2009Q2

REPORT INFORMATION
  Report Type: 
  Country: None (occurrence: None)
  Receive Date: 20090508
  Receipt Date: 20090501
  Transmission Date: 20091009
  Serious: Yes (Other)
  Sender: FDA-Public Use
  Company Number: IPS_01607_2009

PATIENT
  Age: 70 Year
  Sex: Female
  Weight: 63.5036 kg

DRUGS (4)
  1. APOKYN [Suspect]
     Indication: PARKINSON'S DISEASE
     Dosage: 0.2 ML, SUBCUTANEOUS
     Route: 058
     Dates: end: 20090420
  2. STALEVO 100 [Concomitant]
  3. ELDEPRYL [Concomitant]
  4. METOPROLOL [Concomitant]

REACTIONS (2)
  - BLINDNESS TRANSIENT [None]
  - VISUAL IMPAIRMENT [None]
